FAERS Safety Report 8789482 (Version 1)
Quarter: 2012Q4

REPORT INFORMATION
  Report Type: Spontaneous
  Country: US (occurrence: None)
  Receive Date: 20120906
  Receipt Date: 20120906
  Transmission Date: 20130627
  Serious: Yes (Other)
  Sender: FDA-Public Use
  Company Number: 1390600

PATIENT
  Sex: Male

DRUGS (1)
  1. LIDOCAINE HYDROCHLORIDE AND EPINEPHRINE [Suspect]
     Indication: BLEPHAROPLASTY

REACTIONS (1)
  - Eyelid bleeding [None]
